FAERS Safety Report 24691570 (Version 1)
Quarter: 2024Q4

REPORT INFORMATION
  Report Type: Spontaneous
  Country: CN (occurrence: CN)
  Receive Date: 20241203
  Receipt Date: 20241203
  Transmission Date: 20250114
  Serious: Yes (Hospitalization, Other)
  Sender: PFIZER
  Company Number: CN-PFIZER INC-PV202400155036

PATIENT
  Age: 8 Year
  Sex: Male
  Weight: 26 kg

DRUGS (2)
  1. METHOTREXATE SODIUM [Suspect]
     Active Substance: METHOTREXATE SODIUM
     Indication: Chemotherapy
     Dosage: 0.014 G, 1X/DAY
     Route: 040
     Dates: start: 20240809, end: 20240809
  2. METHOTREXATE SODIUM [Suspect]
     Active Substance: METHOTREXATE SODIUM
     Indication: Haemophagocytic lymphohistiocytosis

REACTIONS (7)
  - Drug-induced liver injury [Unknown]
  - Myelosuppression [Unknown]
  - Chronic active Epstein-Barr virus infection [Unknown]
  - Sepsis [Unknown]
  - Myocardial necrosis marker increased [Unknown]
  - Electrolyte imbalance [Unknown]
  - Off label use [Unknown]

NARRATIVE: CASE EVENT DATE: 20240809
